FAERS Safety Report 23728235 (Version 1)
Quarter: 2024Q2

REPORT INFORMATION
  Report Type: Spontaneous
  Country: CL (occurrence: None)
  Receive Date: 20240410
  Receipt Date: 20240410
  Transmission Date: 20240715
  Serious: Yes (Other)
  Sender: FDA-Public Use
  Company Number: CL-ROCHE-3540680

PATIENT
  Age: 48 Year

DRUGS (11)
  1. POLATUZUMAB VEDOTIN [Suspect]
     Active Substance: POLATUZUMAB VEDOTIN
     Indication: Double hit lymphoma
     Route: 065
     Dates: start: 20240208
  2. POLATUZUMAB VEDOTIN [Suspect]
     Active Substance: POLATUZUMAB VEDOTIN
     Route: 065
     Dates: start: 20240325
  3. RITUXIMAB [Suspect]
     Active Substance: RITUXIMAB
     Indication: Double hit lymphoma
     Route: 065
     Dates: start: 20220616
  4. BENDAMUSTINE [Concomitant]
     Active Substance: BENDAMUSTINE
     Indication: Double hit lymphoma
     Dates: start: 20240208
  5. CYCLOPHOSPHAMIDE [Concomitant]
     Active Substance: CYCLOPHOSPHAMIDE
     Indication: Double hit lymphoma
     Dates: start: 20220616
  6. VINCRISTINE SULFATE [Concomitant]
     Active Substance: VINCRISTINE SULFATE
     Indication: Double hit lymphoma
     Dates: start: 20220616
  7. DOXORUBICIN HYDROCHLORIDE [Concomitant]
     Active Substance: DOXORUBICIN HYDROCHLORIDE
     Indication: Double hit lymphoma
  8. METHOTREXATE [Concomitant]
     Active Substance: METHOTREXATE
     Indication: Double hit lymphoma
  9. DEXAMETHASONE [Concomitant]
     Active Substance: DEXAMETHASONE
     Indication: Double hit lymphoma
     Dates: start: 20220616
  10. PREDNISONE [Concomitant]
     Active Substance: PREDNISONE
     Indication: Double hit lymphoma
     Dates: start: 20220616
  11. VINCRISTINE [Concomitant]
     Active Substance: VINCRISTINE
     Indication: Double hit lymphoma
     Dates: start: 20220616

REACTIONS (5)
  - B-cell lymphoma [Unknown]
  - Septic shock [Unknown]
  - Megacolon [Unknown]
  - Retroperitoneal mass [Unknown]
  - Stem cell transplant [Unknown]

NARRATIVE: CASE EVENT DATE: 20240101
